FAERS Safety Report 6236681-X (Version None)
Quarter: 2009Q2

REPORT INFORMATION
  Report Type: 
  Country: None (occurrence: None)
  Receive Date: 20090619
  Receipt Date: 20090210
  Transmission Date: 20091009
  Serious: No
  Sender: FDA-Public Use
  Company Number: US-ASTRAZENECA-2009UW03926

PATIENT
  Age: 82 Year
  Sex: Male
  Weight: 78 kg

DRUGS (5)
  1. ATACAND [Suspect]
     Indication: HYPERTENSION
     Route: 048
     Dates: start: 20090209
  2. COUMADIN [Concomitant]
  3. GLYBURIDE [Concomitant]
  4. NAMENDA [Concomitant]
  5. SIMVASTATIN [Concomitant]

REACTIONS (3)
  - BLOOD PRESSURE FLUCTUATION [None]
  - DIZZINESS [None]
  - HEART RATE DECREASED [None]
